FAERS Safety Report 8342751-2 (Version None)
Quarter: 2012Q2

REPORT INFORMATION
  Report Type: 
  Country: None (occurrence: None)
  Receive Date: 20120508
  Receipt Date: 20120502
  Transmission Date: 20120825
  Serious: Yes (Hospitalization, Other)
  Sender: FDA-Public Use
  Company Number: US-AMGEN-USASP2012027798

PATIENT
  Age: 56 Year
  Sex: Female

DRUGS (1)
  1. ENBREL [Suspect]
     Indication: RHEUMATOID ARTHRITIS
     Dosage: 50 MG, QWK
     Dates: start: 20120221, end: 20120313

REACTIONS (11)
  - VOMITING [None]
  - HERPES ZOSTER [None]
  - DYSPNOEA [None]
  - RHEUMATOID ARTHRITIS [None]
  - RASH PAPULAR [None]
  - PHYSICAL DISABILITY [None]
  - DIARRHOEA [None]
  - ABDOMINAL PAIN [None]
  - BACK PAIN [None]
  - BRONCHITIS [None]
  - RASH ERYTHEMATOUS [None]
